FAERS Safety Report 4896444-4 (Version None)
Quarter: 2006Q1

REPORT INFORMATION
  Report Type: 
  Country: None (occurrence: None)
  Receive Date: 20060131
  Receipt Date: 20060109
  Transmission Date: 20060701
  Serious: Yes (Hospitalization)
  Sender: FDA-Public Use
  Company Number: US-BRISTOL-MYERS SQUIBB COMPANY-13241401

PATIENT
  Age: 54 Year
  Sex: Female

DRUGS (3)
  1. CETUXIMAB [Suspect]
     Indication: NON-SMALL CELL LUNG CANCER
     Dosage: 14TH COURSE. THERAPY START DATE 19-SEP-05 (475). THERAPY DELAYED/OMITTED.
     Route: 042
     Dates: start: 20051228, end: 20051228
  2. CARBOPLATIN [Suspect]
     Indication: NON-SMALL CELL LUNG CANCER
     Dosage: 5TH COURSE. THERAPY START DATE 19-SEP-05 (735). THERAPY DELAYED/OMITTED.
     Route: 042
     Dates: start: 20051219, end: 20051219
  3. TAXOTERE [Suspect]
     Indication: NON-SMALL CELL LUNG CANCER
     Dosage: 4TH COURSE. THERAPY START DATE 19-SEP-05 (142.5). DELAYED/OMITTED.
     Route: 042
     Dates: start: 20051128, end: 20051128

REACTIONS (1)
  - WOUND INFECTION STAPHYLOCOCCAL [None]
